FAERS Safety Report 16087145 (Version 1)
Quarter: 2019Q1

REPORT INFORMATION
  Report Type: Spontaneous
  Country: FI (occurrence: FI)
  Receive Date: 20190319
  Receipt Date: 20190319
  Transmission Date: 20190418
  Serious: Yes (Life-Threatening)
  Sender: FDA-Public Use
  Company Number: FI-ROCHE-2278607

PATIENT
  Age: 4 Year
  Sex: Male

DRUGS (3)
  1. PANADOL [Concomitant]
     Active Substance: ACETAMINOPHEN
     Indication: PYREXIA
     Dosage: 300,MG,DAILY
     Route: 054
     Dates: start: 201902, end: 201902
  2. TAMIFLU [Suspect]
     Active Substance: OSELTAMIVIR PHOSPHATE
     Indication: INFLUENZA
     Dosage: 15,ML,DAILY (POWDER FOR ORAL SUSPENSION)
     Route: 048
     Dates: start: 201902, end: 201902
  3. BURANA [Suspect]
     Active Substance: IBUPROFEN
     Indication: PYREXIA
     Dosage: 200,MG,DAILY
     Route: 054
     Dates: start: 201902, end: 201902

REACTIONS (6)
  - Generalised erythema [Recovering/Resolving]
  - Burning sensation [Recovering/Resolving]
  - Vomiting [Recovering/Resolving]
  - Blood pressure decreased [Recovering/Resolving]
  - Mean arterial pressure decreased [Recovering/Resolving]
  - Loss of consciousness [Recovering/Resolving]

NARRATIVE: CASE EVENT DATE: 20190220
